FAERS Safety Report 4848910-5 (Version None)
Quarter: 2005Q4

REPORT INFORMATION
  Report Type: 
  Country: None (occurrence: None)
  Receive Date: 20051208
  Receipt Date: 20051005
  Transmission Date: 20060501
  Serious: Yes (Death, Hospitalization)
  Sender: FDA-Public Use
  Company Number: CA-MERCK-0510CAN00049

PATIENT
  Age: 79 Year
  Sex: Male
  Weight: 74 kg

DRUGS (2)
  1. VIOXX [Suspect]
     Indication: ARTHRITIS
     Route: 048
     Dates: start: 20010101, end: 20031201
  2. TERAZOSIN HYDROCHLORIDE [Concomitant]
     Route: 065

REACTIONS (2)
  - BASILAR ARTERY THROMBOSIS [None]
  - PNEUMONIA ASPIRATION [None]
